FAERS Safety Report 24806005 (Version 2)
Quarter: 2025Q3

REPORT INFORMATION
  Report Type: Spontaneous
  Country: US (occurrence: US)
  Receive Date: 20250103
  Receipt Date: 20250916
  Transmission Date: 20251021
  Serious: Yes (Other)
  Sender: PFIZER
  Company Number: US-PFIZER INC-202400334870

PATIENT
  Age: 62 Year
  Sex: Female

DRUGS (1)
  1. VELSIPITY [Suspect]
     Active Substance: ETRASIMOD ARGININE

REACTIONS (2)
  - Upper limb fracture [Unknown]
  - Constipation [Unknown]

NARRATIVE: CASE EVENT DATE: 20250101
